FAERS Safety Report 16855397 (Version 2)
Quarter: 2019Q3

REPORT INFORMATION
  Report Type: Report from Study
  Country: PE (occurrence: PE)
  Receive Date: 20190926
  Receipt Date: 20190930
  Transmission Date: 20191005
  Serious: Yes (Hospitalization, Other)
  Sender: FDA-Public Use
  Company Number: PHHY2019PE186448

PATIENT
  Age: 45 Year
  Sex: Female

DRUGS (3)
  1. SUPRADYN [Concomitant]
     Active Substance: ASCORBIC ACID\MINERALS\VITAMINS
     Indication: SUPPLEMENTATION THERAPY
     Dosage: UNK
     Route: 065
     Dates: start: 201906
  2. TASIGNA [Suspect]
     Active Substance: NILOTINIB
     Indication: EXPOSURE VIA PARTNER
     Dosage: PATERNAL DOSE: 800 MG, Q24H
     Route: 050
  3. FOLIC ACID. [Concomitant]
     Active Substance: FOLIC ACID
     Indication: SUPPLEMENTATION THERAPY
     Dosage: UNK
     Route: 065
     Dates: start: 201903, end: 201905

REACTIONS (6)
  - Anxiety [Unknown]
  - Premature rupture of membranes [Unknown]
  - Pre-eclampsia [Recovered/Resolved]
  - Premature delivery [Unknown]
  - Exposure via partner [Unknown]
  - Blood pressure increased [Recovering/Resolving]

NARRATIVE: CASE EVENT DATE: 20190816
